FAERS Safety Report 13303957 (Version 1)
Quarter: 2017Q1

REPORT INFORMATION
  Report Type: Not Available
  Country: US (occurrence: US)
  Receive Date: 20170307
  Receipt Date: 20170307
  Transmission Date: 20170428
  Serious: Yes (Death)
  Sender: FDA-Public Use
  Company Number: US--2017-US-000027

PATIENT
  Age: 26 Year
  Sex: Male

DRUGS (3)
  1. AMLODIPINE BESYLATE BRAND UNSPECIFIED (VIVIMED) [Suspect]
     Active Substance: AMLODIPINE BESYLATE
     Indication: HYPERTENSION
  2. METOPROLOL. [Suspect]
     Active Substance: METOPROLOL
     Indication: HYPERTENSION
  3. LISINOPRIL. [Suspect]
     Active Substance: LISINOPRIL
     Indication: HYPERTENSION

REACTIONS (8)
  - Acidosis [None]
  - Intentional overdose [Fatal]
  - Bradycardia [Fatal]
  - Acute kidney injury [Fatal]
  - Death [Fatal]
  - Hypotension [Fatal]
  - Pulmonary oedema [None]
  - Hypoxia [Fatal]
